FAERS Safety Report 25394417 (Version 1)
Quarter: 2025Q2

REPORT INFORMATION
  Report Type: Spontaneous
  Country: PK (occurrence: PK)
  Receive Date: 20250604
  Receipt Date: 20250604
  Transmission Date: 20250716
  Serious: Yes (Hospitalization)
  Sender: ROCHE
  Company Number: PK-ROCHE-10000294652

PATIENT
  Age: 63 Year
  Sex: Male

DRUGS (8)
  1. RITUXIMAB [Suspect]
     Active Substance: RITUXIMAB
     Indication: Diffuse large B-cell lymphoma
     Route: 065
  2. CYCLOPHOSPHAMIDE [Concomitant]
     Active Substance: CYCLOPHOSPHAMIDE
  3. DOXORUBICIN [Concomitant]
     Active Substance: DOXORUBICIN
  4. VINCRISTINE [Concomitant]
     Active Substance: VINCRISTINE
  5. PREDNISONE [Concomitant]
     Active Substance: PREDNISONE
  6. DEXAMETHASONE [Concomitant]
     Active Substance: DEXAMETHASONE
  7. CYTARABINE [Concomitant]
     Active Substance: CYTARABINE
  8. OXALIPLATIN [Concomitant]
     Active Substance: OXALIPLATIN

REACTIONS (1)
  - Disease recurrence [Recovering/Resolving]

NARRATIVE: CASE EVENT DATE: 20250101
